FAERS Safety Report 4991269-3 (Version None)
Quarter: 2006Q2

REPORT INFORMATION
  Report Type: 
  Country: None (occurrence: None)
  Receive Date: 20060428
  Receipt Date: 20060418
  Transmission Date: 20061013
  Serious: Yes (Death, Hospitalization)
  Sender: FDA-Public Use
  Company Number: 2006BI005719

PATIENT
  Age: 56 Year
  Sex: Female
  Weight: 67.586 kg

DRUGS (2)
  1. AVONEX [Suspect]
     Indication: MULTIPLE SCLEROSIS
     Dosage: 30 UG; QW; IM
     Route: 030
     Dates: start: 20020101, end: 20030101
  2. AVONEX [Suspect]
     Indication: MULTIPLE SCLEROSIS
     Dosage: 30 UG; QW; IM
     Route: 030
     Dates: start: 20030101, end: 20050801

REACTIONS (7)
  - ANAEMIA [None]
  - CELLULITIS [None]
  - CONVULSION [None]
  - DISEASE PROGRESSION [None]
  - MULTIPLE SCLEROSIS [None]
  - PNEUMONIA ASPIRATION [None]
  - URINARY TRACT INFECTION [None]
